FAERS Safety Report 4394913-7 (Version None)
Quarter: 2004Q3

REPORT INFORMATION
  Report Type: 
  Country: None (occurrence: None)
  Receive Date: 20040712
  Receipt Date: 20040617
  Transmission Date: 20050211
  Serious: No
  Sender: FDA-Public Use
  Company Number: US-GLAXOSMITHKLINE-A0515159A

PATIENT
  Sex: Male

DRUGS (2)
  1. PAXIL [Suspect]
     Indication: DEPRESSION
     Dosage: 40MG PER DAY
     Route: 048
     Dates: end: 20021201
  2. DEPAKOTE [Concomitant]

REACTIONS (9)
  - ANGER [None]
  - ASTHENIA [None]
  - DRUG WITHDRAWAL SYNDROME [None]
  - INJURY [None]
  - MANIA [None]
  - PANIC ATTACK [None]
  - SELF MUTILATION [None]
  - SUICIDE ATTEMPT [None]
  - VISION BLURRED [None]
